FAERS Safety Report 22525805 (Version 1)
Quarter: 2023Q2

REPORT INFORMATION
  Report Type: Spontaneous
  Country: US (occurrence: None)
  Receive Date: 20230605
  Receipt Date: 20230605
  Transmission Date: 20230722
  Serious: Yes (Hospitalization)
  Sender: FDA-Public Use
  Company Number: None

PATIENT
  Age: 52 Year
  Sex: Female
  Weight: 123.1 kg

DRUGS (1)
  1. XELJANZ [Suspect]
     Active Substance: TOFACITINIB CITRATE
     Indication: Rheumatoid arthritis
     Dosage: FREQUENCY : TWICE A DAY;?
     Route: 048
     Dates: start: 20221216, end: 20230605

REACTIONS (10)
  - Chest discomfort [None]
  - Neck pain [None]
  - Pain in extremity [None]
  - Pain in extremity [None]
  - Dyspnoea [None]
  - Hyperhidrosis [None]
  - Troponin increased [None]
  - Coronary artery occlusion [None]
  - Coronary artery dissection [None]
  - Acute myocardial infarction [None]

NARRATIVE: CASE EVENT DATE: 20230406
